FAERS Safety Report 5003070-5 (Version None)
Quarter: 2006Q2

REPORT INFORMATION
  Report Type: 
  Country: None (occurrence: None)
  Receive Date: 20060512
  Receipt Date: 20060425
  Transmission Date: 20061013
  Serious: Yes (Other)
  Sender: FDA-Public Use
  Company Number: US200605000034

PATIENT
  Age: 73 Year
  Sex: Female
  Weight: 39.9 kg

DRUGS (2)
  1. FORTEO [Suspect]
     Indication: OSTEOPOROSIS
     Dates: start: 20041201, end: 20051101
  2. FORTEO [Concomitant]

REACTIONS (8)
  - DEEP VEIN THROMBOSIS [None]
  - GASTROINTESTINAL NECROSIS [None]
  - HYPOAESTHESIA [None]
  - INTERNAL HERNIA [None]
  - LIMB DISCOMFORT [None]
  - PHARMACEUTICAL PRODUCT COMPLAINT [None]
  - THROMBOSIS [None]
  - VOMITING [None]
